FAERS Safety Report 5124078-5 (Version None)
Quarter: 2006Q4

REPORT INFORMATION
  Report Type: 
  Country: None (occurrence: None)
  Receive Date: 20061010
  Receipt Date: 20051108
  Transmission Date: 20070319
  Serious: Yes (Other)
  Sender: FDA-Public Use
  Company Number: US-BRISTOL-MYERS SQUIBB COMPANY-13174644

PATIENT
  Sex: Male

DRUGS (3)
  1. AVALIDE [Suspect]
  2. AVALIDE [Suspect]
  3. AVAPRO [Suspect]

REACTIONS (2)
  - BLOOD PRESSURE DECREASED [None]
  - SYNCOPE [None]
